FAERS Safety Report 22921062 (Version 2)
Quarter: 2025Q3

REPORT INFORMATION
  Report Type: Spontaneous
  Country: US (occurrence: US)
  Receive Date: 20230908
  Receipt Date: 20250905
  Transmission Date: 20251021
  Serious: No
  Sender: DOMPE FARMACEUTICI
  Company Number: US-FARMAPROD-202305-1307

PATIENT
  Age: 78 Year
  Sex: Female
  Weight: 63.5 kg

DRUGS (12)
  1. OXERVATE [Suspect]
     Active Substance: CENEGERMIN-BKBJ
     Indication: Neurotrophic keratopathy
     Route: 047
     Dates: start: 20230429
  2. OXERVATE [Suspect]
     Active Substance: CENEGERMIN-BKBJ
     Indication: Ulcerative keratitis
     Route: 047
     Dates: start: 20240204
  3. OXERVATE [Suspect]
     Active Substance: CENEGERMIN-BKBJ
     Indication: Hypoaesthesia eye
  4. ARTIFICIAL TEARS [Concomitant]
  5. PREDNISOLONE ACETATE [Concomitant]
     Active Substance: PREDNISOLONE ACETATE
  6. TIMOLOL MALEATE [Concomitant]
     Active Substance: TIMOLOL MALEATE
  7. MOXIFLOXACIN [Concomitant]
     Active Substance: MOXIFLOXACIN
  8. VITAMINS [Concomitant]
     Active Substance: VITAMINS
  9. FISH OIL [Concomitant]
     Active Substance: FISH OIL
  10. CINNAMON [Concomitant]
     Active Substance: CINNAMON
  11. VITAMIN D3 [Concomitant]
     Active Substance: CHOLECALCIFEROL
  12. MAGNESIUM CITRATE [Concomitant]
     Active Substance: MAGNESIUM CITRATE

REACTIONS (2)
  - Eye pain [Not Recovered/Not Resolved]
  - Therapy interrupted [Unknown]

NARRATIVE: CASE EVENT DATE: 20230430
